FAERS Safety Report 7510142-X (Version None)
Quarter: 2011Q2

REPORT INFORMATION
  Report Type: 
  Country: None (occurrence: None)
  Receive Date: 20110527
  Receipt Date: 20110513
  Transmission Date: 20111010
  Serious: No
  Sender: FDA-Public Use
  Company Number: DE-UCBSA-030483

PATIENT
  Sex: Female

DRUGS (10)
  1. RITUXAN [Concomitant]
     Indication: RHEUMATOID ARTHRITIS
     Route: 042
     Dates: start: 20070426
  2. METHOTREXATE SODIUM [Concomitant]
     Indication: RHEUMATOID ARTHRITIS
     Dates: start: 20070808
  3. NOVAMINSULFON [Concomitant]
     Indication: RHEUMATOID ARTHRITIS
     Dosage: THERAPY START DATE: 20/FEB
  4. VALORON [Concomitant]
     Indication: RHEUMATOID ARTHRITIS
     Dates: start: 20090313
  5. CIMZIA [Suspect]
     Indication: RHEUMATOID ARTHRITIS
     Route: 058
     Dates: end: 20100210
  6. ENBREL [Concomitant]
     Indication: RHEUMATOID ARTHRITIS
     Dates: start: 20060220
  7. ENBREL [Concomitant]
     Dates: start: 20060530
  8. DICLOFENAC SODIUM [Concomitant]
     Indication: RHEUMATOID ARTHRITIS
     Dates: start: 20071228
  9. HUMIRA [Concomitant]
     Indication: RHEUMATOID ARTHRITIS
     Dates: start: 20051117
  10. ARCOXIA [Concomitant]
     Indication: RHEUMATOID ARTHRITIS
     Dates: start: 20060707

REACTIONS (1)
  - BRONCHITIS [None]
